FAERS Safety Report 9683883 (Version 1)
Quarter: 2013Q4

REPORT INFORMATION
  Report Type: Spontaneous
  Country: US (occurrence: US)
  Receive Date: 20131112
  Receipt Date: 20131112
  Transmission Date: 20140711
  Serious: No
  Sender: FDA-Public Use
  Company Number: US-MALLINCKRODT-T201304421

PATIENT
  Age: 53 Year
  Sex: Female
  Weight: 122.45 kg

DRUGS (3)
  1. FENTANYL TRANSDERMAL SYSTEM [Suspect]
     Indication: BACK PAIN
     Dosage: 25 UG/HR, 1 PATCH Q72H
     Route: 062
     Dates: start: 201206
  2. NEURONTIN [Concomitant]
     Indication: NEURALGIA
     Dosage: 800 MG, QID
     Route: 048
     Dates: start: 2011
  3. PERCOCET                           /00446701/ [Concomitant]
     Indication: PAIN
     Dosage: 7.5/325MG, Q6H PRN
     Route: 048
     Dates: start: 2011

REACTIONS (3)
  - Application site haemorrhage [Recovered/Resolved]
  - Application site erythema [Not Recovered/Not Resolved]
  - Application site burn [Not Recovered/Not Resolved]
